FAERS Safety Report 11222677 (Version 2)
Quarter: 2015Q3

REPORT INFORMATION
  Report Type: Spontaneous
  Country: US (occurrence: US)
  Receive Date: 20150626
  Receipt Date: 20150814
  Transmission Date: 20151125
  Serious: Yes (Other)
  Sender: FDA-Public Use
  Company Number: US-AMGEN-USASP2015060774

PATIENT
  Age: 27 Year
  Sex: Female
  Weight: 68.27 kg

DRUGS (3)
  1. ENBREL [Suspect]
     Active Substance: ETANERCEPT
     Indication: PSORIASIS
     Dosage: UNK MG, UNK
     Route: 065
     Dates: start: 20100110
  2. PRENATAL VITAMINS                  /02014401/ [Concomitant]
     Active Substance: VITAMINS
     Dosage: UNK UNK, QD
  3. ENBREL [Suspect]
     Active Substance: ETANERCEPT
     Dosage: UNK UNK, QWK
     Route: 065
     Dates: start: 201208, end: 201209

REACTIONS (6)
  - Pregnancy [Recovered/Resolved]
  - Vomiting in pregnancy [Recovered/Resolved]
  - Premature labour [Recovered/Resolved]
  - Dysuria [Recovered/Resolved]
  - Abortion spontaneous [Recovered/Resolved]
  - Endodontic procedure [Unknown]

NARRATIVE: CASE EVENT DATE: 2012
